FAERS Safety Report 7658336-7 (Version None)
Quarter: 2011Q3

REPORT INFORMATION
  Report Type: 
  Country: None (occurrence: None)
  Receive Date: 20110802
  Receipt Date: 20110721
  Transmission Date: 20111222
  Serious: Yes (Hospitalization, Other)
  Sender: FDA-Public Use
  Company Number: 2011MA009219

PATIENT
  Sex: Female

DRUGS (2)
  1. GEODON [Suspect]
     Dosage: 60 MG;BID
  2. LORAZEPAM [Suspect]

REACTIONS (4)
  - SCHIZOPHRENIA [None]
  - BIPOLAR DISORDER [None]
  - APATHY [None]
  - UNEVALUABLE EVENT [None]
